FAERS Safety Report 21525661 (Version 4)
Quarter: 2023Q1

REPORT INFORMATION
  Report Type: Spontaneous
  Country: JP (occurrence: JP)
  Receive Date: 20221031
  Receipt Date: 20230123
  Transmission Date: 20230417
  Serious: Yes (Hospitalization, Other)
  Sender: FDA-Public Use
  Company Number: JP-NOVARTISPH-NVSJ2022JP100235

PATIENT
  Age: 13 Year
  Sex: Female

DRUGS (26)
  1. ILARIS [Suspect]
     Active Substance: CANAKINUMAB
     Indication: Still^s disease
     Dosage: 100 MG, 4W
     Route: 058
     Dates: start: 20190207, end: 20190207
  2. ILARIS [Suspect]
     Active Substance: CANAKINUMAB
     Dosage: 100 MG, 4W
     Route: 058
     Dates: start: 20190307, end: 20190307
  3. ILARIS [Suspect]
     Active Substance: CANAKINUMAB
     Dosage: 100 MG, 4W
     Route: 058
     Dates: start: 20190404, end: 20190404
  4. ILARIS [Suspect]
     Active Substance: CANAKINUMAB
     Dosage: 100 MG, 4W
     Route: 058
     Dates: start: 20190509, end: 20190509
  5. ILARIS [Suspect]
     Active Substance: CANAKINUMAB
     Dosage: 100 MG, 4W
     Route: 058
     Dates: start: 20190606, end: 20190606
  6. ILARIS [Suspect]
     Active Substance: CANAKINUMAB
     Dosage: 100 MG, 4W
     Route: 058
     Dates: start: 20190704, end: 20190704
  7. ILARIS [Suspect]
     Active Substance: CANAKINUMAB
     Dosage: 110 MG, 4W
     Route: 058
     Dates: start: 20190801, end: 20190801
  8. ILARIS [Suspect]
     Active Substance: CANAKINUMAB
     Dosage: 110 MG, 4W
     Route: 058
     Dates: start: 20190829, end: 20190829
  9. ILARIS [Suspect]
     Active Substance: CANAKINUMAB
     Dosage: 150 MG, 4W
     Route: 058
     Dates: start: 20220310, end: 20220310
  10. ILARIS [Suspect]
     Active Substance: CANAKINUMAB
     Dosage: 150 MG, 4W
     Route: 058
     Dates: start: 20220407, end: 20220407
  11. ILARIS [Suspect]
     Active Substance: CANAKINUMAB
     Dosage: 150 MG, 4W
     Route: 058
     Dates: start: 20220506, end: 20220506
  12. ILARIS [Suspect]
     Active Substance: CANAKINUMAB
     Dosage: 150 MG, 4W
     Route: 058
     Dates: start: 20220616, end: 20220616
  13. PREDNISOLONE [Concomitant]
     Active Substance: PREDNISOLONE
     Indication: Still^s disease
     Dosage: 1.5 MG/KG
     Route: 065
  14. PREDNISOLONE [Concomitant]
     Active Substance: PREDNISOLONE
     Dosage: UNK
     Route: 065
  15. PREDNISOLONE [Concomitant]
     Active Substance: PREDNISOLONE
     Dosage: 4 UNK
     Route: 065
  16. PREDNISOLONE [Concomitant]
     Active Substance: PREDNISOLONE
     Dosage: 3.5 MG
     Route: 048
     Dates: start: 20180809, end: 20190404
  17. PREDNISOLONE [Concomitant]
     Active Substance: PREDNISOLONE
     Dosage: 3 MG
     Route: 048
     Dates: start: 20190405, end: 20190417
  18. PREDNISOLONE [Concomitant]
     Active Substance: PREDNISOLONE
     Dosage: 20 MG
     Route: 065
     Dates: start: 20190422, end: 20190425
  19. PREDNISOLONE [Concomitant]
     Active Substance: PREDNISOLONE
     Dosage: 15 MG
     Route: 048
     Dates: start: 20190426, end: 20190503
  20. PREDNISOLONE [Concomitant]
     Active Substance: PREDNISOLONE
     Dosage: 12 MG
     Route: 048
     Dates: start: 20190504, end: 20190509
  21. PREDNISOLONE [Concomitant]
     Active Substance: PREDNISOLONE
     Dosage: 10 MG
     Route: 048
     Dates: start: 20190510
  22. METHOTREXATE [Concomitant]
     Active Substance: METHOTREXATE
     Indication: Still^s disease
     Dosage: 4 MG
     Route: 048
     Dates: start: 20190117
  23. METHOTREXATE [Concomitant]
     Active Substance: METHOTREXATE
     Dosage: 10 MG
     Route: 065
  24. PROGRAF [Concomitant]
     Active Substance: TACROLIMUS
     Indication: Still^s disease
     Dosage: UNK
     Route: 048
     Dates: start: 201211, end: 201908
  25. PROGRAF [Concomitant]
     Active Substance: TACROLIMUS
     Dosage: UNK
     Route: 048
     Dates: start: 20180402
  26. PROGRAF [Concomitant]
     Active Substance: TACROLIMUS
     Dosage: 1.5 MG
     Route: 065

REACTIONS (6)
  - Haemophagocytic lymphohistiocytosis [Recovered/Resolved]
  - Lymphadenopathy [Recovering/Resolving]
  - Headache [Recovering/Resolving]
  - Malaise [Recovering/Resolving]
  - Haemophagocytic lymphohistiocytosis [Recovered/Resolved]
  - Lymphadenopathy [Unknown]

NARRATIVE: CASE EVENT DATE: 20220601
